FAERS Safety Report 10842172 (Version 1)
Quarter: 2015Q1

REPORT INFORMATION
  Report Type: Spontaneous
  Country: US (occurrence: US)
  Receive Date: 20150220
  Receipt Date: 20150220
  Transmission Date: 20150721
  Serious: Yes (Other)
  Sender: FDA-Public Use
  Company Number: US-RB-073254-15

PATIENT
  Sex: Female

DRUGS (1)
  1. MUCINEX [Suspect]
     Active Substance: GUAIFENESIN
     Indication: PRODUCT USED FOR UNKNOWN INDICATION
     Dosage: UNKNOWN
     Route: 065

REACTIONS (7)
  - Apparent death [Unknown]
  - Pyrexia [Unknown]
  - Seizure [Unknown]
  - Bone pain [Unknown]
  - Dyspnoea [Unknown]
  - Hallucination [Unknown]
  - Chest pain [Unknown]
